FAERS Safety Report 15788814 (Version 1)
Quarter: 2019Q1

REPORT INFORMATION
  Report Type: Spontaneous
  Country: IN (occurrence: IN)
  Receive Date: 20190104
  Receipt Date: 20190104
  Transmission Date: 20190417
  Serious: Yes (Life-Threatening, Hospitalization, Other)
  Sender: FDA-Public Use
  Company Number: IN-TORRENT-00002062

PATIENT
  Age: 40 Year
  Sex: Male

DRUGS (3)
  1. CARBAMAZEPINE. [Suspect]
     Active Substance: CARBAMAZEPINE
     Indication: ALCOHOL WITHDRAWAL SYNDROME
     Dosage: SINGLE DOSE
  2. THIAMINE. [Concomitant]
     Active Substance: THIAMINE
     Indication: PRODUCT USED FOR UNKNOWN INDICATION
     Dosage: UNKNOWN
  3. BACLOFEN. [Concomitant]
     Active Substance: BACLOFEN
     Indication: PRODUCT USED FOR UNKNOWN INDICATION
     Dosage: UNKNOWN

REACTIONS (7)
  - Liver function test abnormal [Recovering/Resolving]
  - Off label use [Unknown]
  - Sepsis [Recovering/Resolving]
  - Electrolyte imbalance [Recovering/Resolving]
  - Toxic epidermal necrolysis [Recovering/Resolving]
  - Pseudomonas infection [Recovering/Resolving]
  - Procalcitonin increased [Recovering/Resolving]
